FAERS Safety Report 8563710-0 (Version None)
Quarter: 2012Q3

REPORT INFORMATION
  Report Type: 
  Country: None (occurrence: None)
  Receive Date: 20120803
  Receipt Date: 20120726
  Transmission Date: 20120928
  Serious: No
  Sender: FDA-Public Use
  Company Number: US-BIOGENIDEC-2012BI024677

PATIENT
  Age: 64 Year
  Sex: Male

DRUGS (2)
  1. AMBIEN [Concomitant]
     Indication: INSOMNIA
  2. AVONEX [Suspect]
     Indication: MULTIPLE SCLEROSIS
     Route: 030
     Dates: start: 20120705

REACTIONS (8)
  - MIGRAINE [None]
  - PAIN [None]
  - ARTHRALGIA [None]
  - GAIT DISTURBANCE [None]
  - HEADACHE [None]
  - INFLUENZA LIKE ILLNESS [None]
  - NAUSEA [None]
  - MUSCLE SPASMS [None]
